FAERS Safety Report 22031091 (Version 3)
Quarter: 2023Q1

REPORT INFORMATION
  Report Type: Spontaneous
  Country: AU (occurrence: AU)
  Receive Date: 20230223
  Receipt Date: 20230307
  Transmission Date: 20230418
  Serious: No
  Sender: FDA-Public Use
  Company Number: AU-BEH-2023155670

PATIENT
  Age: 63 Year
  Sex: Female
  Weight: 110.7 kg

DRUGS (6)
  1. HIZENTRA [Suspect]
     Active Substance: HUMAN IMMUNOGLOBULIN G
     Indication: Secondary immunodeficiency
     Dosage: UNK
     Route: 058
     Dates: start: 20230130, end: 20230130
  2. HIZENTRA [Suspect]
     Active Substance: HUMAN IMMUNOGLOBULIN G
     Dosage: UNK
     Route: 058
     Dates: start: 20230130, end: 20230130
  3. LORATADINE [Concomitant]
     Active Substance: LORATADINE
     Indication: Premedication
     Dosage: 10 UNK
  4. FAMOTIDINE [Concomitant]
     Active Substance: FAMOTIDINE
     Indication: Premedication
  5. PANADOL [Concomitant]
     Active Substance: ACETAMINOPHEN
     Indication: Premedication
  6. VALPROATE SODIUM [Concomitant]
     Active Substance: VALPROATE SODIUM
     Indication: Epilepsy

REACTIONS (5)
  - Epileptic aura [Recovered/Resolved]
  - Tension headache [Recovered/Resolved]
  - Chest discomfort [Recovered/Resolved]
  - Muscle tightness [Recovered/Resolved]
  - Dyspnoea [Recovered/Resolved]

NARRATIVE: CASE EVENT DATE: 20230130
